FAERS Safety Report 5511636-9 (Version None)
Quarter: 2007Q4

REPORT INFORMATION
  Report Type: 
  Country: None (occurrence: None)
  Receive Date: 20071109
  Receipt Date: 20051201
  Transmission Date: 20080405
  Serious: Yes (Hospitalization)
  Sender: FDA-Public Use
  Company Number: US-PFIZER INC-2003160616US

PATIENT
  Sex: Male
  Weight: 67.6 kg

DRUGS (16)
  1. PLACEBO [Suspect]
     Indication: COLON CANCER
     Route: 048
     Dates: start: 20030509, end: 20030521
  2. IRINOTECAN HCL [Suspect]
     Indication: COLON CANCER
     Route: 042
     Dates: start: 20030509, end: 20030509
  3. FLUOROURACIL [Suspect]
     Indication: COLON CANCER
     Route: 042
     Dates: start: 20030509, end: 20030509
  4. FLUOROURACIL [Suspect]
     Route: 042
     Dates: start: 20030509, end: 20030511
  5. LEUCOVORIN [Suspect]
     Indication: COLON CANCER
     Route: 042
     Dates: start: 20030509, end: 20030509
  6. ZOLOFT [Concomitant]
     Indication: DEPRESSION
  7. NEXIUM [Concomitant]
     Indication: GASTROOESOPHAGEAL REFLUX DISEASE
  8. COMPAZINE [Concomitant]
     Indication: NAUSEA
  9. SULFASALAZINE [Concomitant]
     Indication: CROHN'S DISEASE
  10. IMDUR [Concomitant]
     Indication: CORONARY ARTERY DISEASE
  11. ZANTAC [Concomitant]
     Indication: GASTROOESOPHAGEAL REFLUX DISEASE
  12. ZOCOR [Concomitant]
     Indication: HYPERLIPIDAEMIA
  13. NORVASC [Concomitant]
  14. TENORMIN [Concomitant]
     Indication: BLOOD PRESSURE INCREASED
  15. ATIVAN [Concomitant]
     Indication: NAUSEA
  16. IMODIUM A-D [Concomitant]
     Indication: DIARRHOEA

REACTIONS (2)
  - DEHYDRATION [None]
  - VOMITING [None]
